FAERS Safety Report 9302836 (Version 1)
Quarter: 2013Q2

REPORT INFORMATION
  Report Type: Spontaneous
  Country: FR (occurrence: None)
  Receive Date: 20130516
  Receipt Date: 20130516
  Transmission Date: 20140414
  Serious: Yes (Hospitalization, Other)
  Sender: FDA-Public Use
  Company Number: 2012000306

PATIENT
  Age: 85 Year
  Sex: Female

DRUGS (11)
  1. ACEON (PERINDOPRIL ERBUMINE) TABLET [Suspect]
     Indication: HYPERTENSION
     Route: 048
     Dates: start: 2012
  2. SOTALEX [Suspect]
     Route: 048
     Dates: start: 201203
  3. ATARAX (HYDROXYZINE) [Concomitant]
  4. LEXOMIL (BROMAZEPAM) [Concomitant]
  5. NORSET (MIRTAZAPINE) [Concomitant]
  6. ZOPLICONE (ZOPLICONE) [Concomitant]
  7. CALCIDOSE VITAMINE D (CALCIUM CARBONATE, COLECALCIFEROL) [Concomitant]
  8. VITAMIN B12 NOS (VITAMIN B12 NOS) [Concomitant]
  9. DUPHALAC (LACTULOSE) [Concomitant]
  10. PREVISCAN (FLUINDIONE) [Concomitant]
  11. CALCIPARINE (HEPARIN CALCIUM) [Concomitant]

REACTIONS (3)
  - Hypoglycaemia [None]
  - Presyncope [None]
  - Malaise [None]
